FAERS Safety Report 10606500 (Version 1)
Quarter: 2014Q4

REPORT INFORMATION
  Report Type: Spontaneous
  Country: US (occurrence: None)
  Receive Date: 20141121
  Receipt Date: 20141121
  Transmission Date: 20150529
  Serious: Yes (Hospitalization)
  Sender: FDA-Public Use
  Company Number: COM-002687

PATIENT
  Age: 61 Year
  Sex: Male
  Weight: 77.11 kg

DRUGS (2)
  1. UNIDENTIFIED ANTIBIOTICS AND INSULIN [Concomitant]
  2. HYDROGEN PEROXIDE. [Suspect]
     Active Substance: HYDROGEN PEROXIDE
     Indication: DRY SKIN
     Dosage: HALF A FOOT BATH EQUAL PARTS WATER
     Dates: start: 20131005, end: 20131128

REACTIONS (6)
  - Feeling abnormal [None]
  - Fall [None]
  - Toe amputation [None]
  - Impaired healing [None]
  - Onychomadesis [None]
  - Localised infection [None]

NARRATIVE: CASE EVENT DATE: 20131128
